FAERS Safety Report 5456539-3 (Version None)
Quarter: 2007Q3

REPORT INFORMATION
  Report Type: 
  Country: None (occurrence: None)
  Receive Date: 20070918
  Receipt Date: 20070913
  Transmission Date: 20080115
  Serious: Yes (Hospitalization)
  Sender: FDA-Public Use
  Company Number: A0681847A

PATIENT
  Age: 57 Year
  Sex: Female

DRUGS (5)
  1. AVANDIA [Suspect]
     Dosage: 8MG PER DAY
     Route: 048
     Dates: start: 20031101, end: 20070201
  2. SINGULAIR [Concomitant]
  3. DIOVAN HCT [Concomitant]
  4. HYDROCHLOROTHIAZIDE [Concomitant]
  5. XANAX [Concomitant]

REACTIONS (3)
  - CATHETERISATION CARDIAC [None]
  - DISABILITY [None]
  - WEIGHT INCREASED [None]
